FAERS Safety Report 19826401 (Version 1)
Quarter: 2021Q3

REPORT INFORMATION
  Report Type: Spontaneous
  Country: US (occurrence: US)
  Receive Date: 20210910
  Receipt Date: 20210910
  Transmission Date: 20211014
  Serious: Yes (Hospitalization)
  Sender: FDA-Public Use
  Company Number: None

PATIENT
  Sex: Male

DRUGS (3)
  1. PULMOZYME [Suspect]
     Active Substance: DORNASE ALFA
  2. XOPENEX NEB [Concomitant]
     Route: 055
     Dates: start: 20191113
  3. ULTRASE CAP [Concomitant]

REACTIONS (1)
  - Hospitalisation [None]
